FAERS Safety Report 8329320-5 (Version None)
Quarter: 2012Q2

REPORT INFORMATION
  Report Type: 
  Country: None (occurrence: None)
  Receive Date: 20120502
  Receipt Date: 20110824
  Transmission Date: 20120825
  Serious: No
  Sender: FDA-Public Use
  Company Number: US-ASTRAZENECA-2011SE50791

PATIENT
  Age: 62 Year
  Sex: Female

DRUGS (1)
  1. FASLODEX [Suspect]
     Indication: BREAST CANCER METASTATIC
     Route: 030

REACTIONS (3)
  - NAUSEA [None]
  - THROAT TIGHTNESS [None]
  - HYPOAESTHESIA [None]
